FAERS Safety Report 21093765 (Version 1)
Quarter: 2022Q3

REPORT INFORMATION
  Report Type: Spontaneous
  Country: US (occurrence: US)
  Receive Date: 20220718
  Receipt Date: 20220718
  Transmission Date: 20221026
  Serious: Yes (Other)
  Sender: FDA-Public Use
  Company Number: US-MYLANLABS-2022M1078478

PATIENT
  Age: 57 Year
  Sex: Male

DRUGS (4)
  1. DAPSONE [Suspect]
     Active Substance: DAPSONE
     Indication: Urticarial vasculitis
     Dosage: 50 MILLIGRAM, QD
     Route: 065
  2. PREDNISONE [Concomitant]
     Active Substance: PREDNISONE
     Indication: Urticarial vasculitis
     Dosage: UNK
     Route: 065
  3. CETIRIZINE [Concomitant]
     Active Substance: CETIRIZINE HYDROCHLORIDE
     Indication: Urticarial vasculitis
     Dosage: UNK
     Route: 065
  4. ADALIMUMAB [Concomitant]
     Active Substance: ADALIMUMAB
     Indication: Rheumatoid arthritis
     Dosage: UNK
     Route: 065

REACTIONS (3)
  - Choroidal effusion [Recovered/Resolved]
  - Retinal detachment [Recovered/Resolved]
  - Off label use [Unknown]
